FAERS Safety Report 5995313-6 (Version None)
Quarter: 2008Q4

REPORT INFORMATION
  Report Type: 
  Country: None (occurrence: None)
  Receive Date: 20081212
  Receipt Date: 20080925
  Transmission Date: 20090506
  Serious: No
  Sender: FDA-Public Use
  Company Number: US-ABBOTT-08P-163-0478417-00

PATIENT
  Sex: Female

DRUGS (3)
  1. HUMIRA [Suspect]
     Indication: DRUG USE FOR UNKNOWN INDICATION
     Route: 058
  2. PREDNISONE TAB [Concomitant]
     Indication: SWELLING
     Route: 048
  3. UNKNOWN PAIN MEDICATION [Concomitant]
     Indication: PAIN
     Route: 048

REACTIONS (3)
  - HYPERKERATOSIS [None]
  - MEMORY IMPAIRMENT [None]
  - VISION BLURRED [None]
